FAERS Safety Report 13522828 (Version 2)
Quarter: 2017Q3

REPORT INFORMATION
  Report Type: Report from Study
  Country: JP (occurrence: JP)
  Receive Date: 20170508
  Receipt Date: 20170831
  Transmission Date: 20171127
  Serious: Yes (Hospitalization, Other)
  Sender: FDA-Public Use
  Company Number: JP-UCBSA-2017016774

PATIENT
  Age: 68 Year
  Sex: Female
  Weight: 54 kg

DRUGS (9)
  1. CERTOLIZUMAB PEGOL RA [Suspect]
     Active Substance: CERTOLIZUMAB PEGOL
     Indication: RHEUMATOID ARTHRITIS
     Dosage: 400 MG, EV 4 WEEKS
     Route: 058
     Dates: start: 20150424, end: 20160704
  2. METOLATE [Suspect]
     Active Substance: METHOTREXATE
     Dosage: 6 MG, WEEKLY (QW)
     Route: 048
     Dates: start: 20150911, end: 20151008
  3. METOLATE [Suspect]
     Active Substance: METHOTREXATE
     Dosage: 8 MG, WEEKLY (QW)
     Route: 048
     Dates: start: 20151009, end: 20160809
  4. MICARDIS [Concomitant]
     Active Substance: TELMISARTAN
     Indication: PRODUCT USED FOR UNKNOWN INDICATION
     Dosage: 20 MG DAILY
     Route: 048
  5. METOLATE [Suspect]
     Active Substance: METHOTREXATE
     Indication: RHEUMATOID ARTHRITIS
     Dosage: 4 MG, WEEKLY (QW)
     Route: 048
     Dates: start: 201409, end: 201501
  6. METOLATE [Suspect]
     Active Substance: METHOTREXATE
     Dosage: 8 MG, WEEKLY (QW)
     Route: 048
     Dates: start: 201501, end: 201502
  7. METOLATE [Suspect]
     Active Substance: METHOTREXATE
     Dosage: 8 MG, WEEKLY (QW)
     Route: 048
     Dates: start: 201503, end: 20150904
  8. METOLATE [Suspect]
     Active Substance: METHOTREXATE
     Dosage: 12 MG, WEEKLY (QW)
     Route: 048
     Dates: start: 201502, end: 201503
  9. FOLIAMIN [Concomitant]
     Active Substance: FOLIC ACID
     Indication: PROPHYLAXIS
     Dosage: 5 MG DAILY
     Route: 048
     Dates: end: 20160809

REACTIONS (2)
  - Lymphoma [Recovering/Resolving]
  - Off label use [Unknown]

NARRATIVE: CASE EVENT DATE: 20150424
